FAERS Safety Report 4975238-5 (Version None)
Quarter: 2006Q2

REPORT INFORMATION
  Report Type: 
  Country: None (occurrence: None)
  Receive Date: 20060417
  Receipt Date: 20060417
  Transmission Date: 20061013
  Serious: Yes (Hospitalization)
  Sender: FDA-Public Use
  Company Number: None

PATIENT
  Age: 73 Year
  Sex: Male
  Weight: 84 kg

DRUGS (2)
  1. AMIODARONE HCL [Suspect]
     Indication: ATRIAL FIBRILLATION
     Dosage: 400MG   DAILY  PO;  100MG  DAILY  PO
     Route: 048
     Dates: start: 20051212, end: 20051219
  2. AMIODARONE HCL [Suspect]
     Indication: ATRIAL FIBRILLATION
     Dosage: 400MG   DAILY  PO;  100MG  DAILY  PO
     Route: 048
     Dates: start: 20051219, end: 20060103

REACTIONS (7)
  - ANOREXIA [None]
  - COAGULOPATHY [None]
  - FATIGUE [None]
  - HEPATIC ENZYME INCREASED [None]
  - INTERNATIONAL NORMALISED RATIO INCREASED [None]
  - MALAISE [None]
  - NAUSEA [None]
